FAERS Safety Report 6763236-0 (Version None)
Quarter: 2010Q2

REPORT INFORMATION
  Report Type: 
  Country: None (occurrence: None)
  Receive Date: 20100610
  Receipt Date: 20100527
  Transmission Date: 20101027
  Serious: No
  Sender: FDA-Public Use
  Company Number: US-ASTRAZENECA-2007UW09942

PATIENT

DRUGS (3)
  1. SEROQUEL [Suspect]
     Indication: SCHIZOAFFECTIVE DISORDER
     Dosage: 1 QAM AND 4 QHS
     Route: 048
     Dates: start: 20060803, end: 20070420
  2. TRAZODONE HCL [Suspect]
     Indication: INSOMNIA
     Dates: start: 20070228, end: 20070420
  3. ZOLOFT [Concomitant]
     Indication: DEPRESSION
     Dates: start: 20060823, end: 20061001

REACTIONS (2)
  - MULTIPLE INJURIES [None]
  - NEUTROPENIA [None]
